FAERS Safety Report 4730588-2 (Version None)
Quarter: 2005Q3

REPORT INFORMATION
  Report Type: 
  Country: None (occurrence: None)
  Receive Date: 20050725
  Receipt Date: 20050316
  Transmission Date: 20060218
  Serious: No
  Sender: FDA-Public Use
  Company Number: USA050393328

PATIENT
  Age: 45 Year
  Sex: Female

DRUGS (3)
  1. STRATTERA [Suspect]
     Dosage: 100 MG DAY
     Dates: start: 20050101
  2. WELLBUTRIN [Concomitant]
  3. BUSPAR [Concomitant]

REACTIONS (1)
  - TREMOR [None]
